FAERS Safety Report 17141987 (Version 1)
Quarter: 2019Q4

REPORT INFORMATION
  Report Type: Spontaneous
  Country: FR (occurrence: FR)
  Receive Date: 20191211
  Receipt Date: 20191211
  Transmission Date: 20200122
  Serious: Yes (Other)
  Sender: FDA-Public Use
  Company Number: FR-ELI_LILLY_AND_COMPANY-FR201912000568

PATIENT
  Age: 65 Year
  Sex: Male
  Weight: 132 kg

DRUGS (5)
  1. ALIMTA [Suspect]
     Active Substance: PEMETREXED DISODIUM
     Indication: LUNG ADENOCARCINOMA
     Dosage: 800 MG, CYCLICAL
     Route: 042
     Dates: start: 20190717, end: 20190717
  2. CIFLOX [CIPROFLOXACIN] [Suspect]
     Active Substance: CIPROFLOXACIN
     Indication: HYPERTHERMIA
     Dosage: 800 MG, DAILY
     Route: 048
     Dates: start: 20190720, end: 20190723
  3. AMIKACINE [AMIKACIN SULFATE] [Suspect]
     Active Substance: AMIKACIN SULFATE
     Indication: HYPERTHERMIA
     Dosage: 3 G, DAILY
     Route: 042
     Dates: start: 20190722, end: 20190727
  4. AUGMENTIN [Suspect]
     Active Substance: AMOXICILLIN\CLAVULANATE POTASSIUM
     Indication: HYPERTHERMIA
     Dosage: 3 G, DAILY
     Route: 048
     Dates: start: 20190720, end: 20190723
  5. TAZOCILLINE [Suspect]
     Active Substance: PIPERACILLIN SODIUM\TAZOBACTAM SODIUM
     Indication: HYPERTHERMIA
     Dosage: 12 G, DAILY
     Route: 042
     Dates: start: 20190724, end: 20190727

REACTIONS (2)
  - Erythema [Recovered/Resolved]
  - Pruritus [Recovered/Resolved]

NARRATIVE: CASE EVENT DATE: 20190727
